FAERS Safety Report 21513038 (Version 1)
Quarter: 2022Q4

REPORT INFORMATION
  Report Type: Spontaneous
  Country: US (occurrence: None)
  Receive Date: 20221026
  Receipt Date: 20221026
  Transmission Date: 20230112
  Serious: No
  Sender: FDA-Public Use
  Company Number: None

PATIENT
  Sex: Male
  Weight: 71.21 kg

DRUGS (12)
  1. TEMOZOLOMIDE [Suspect]
     Active Substance: TEMOZOLOMIDE
     Indication: Brain neoplasm malignant
     Dosage: 250MG DAILY ORAL DAYS 1-5 Q 28 DAYS;?
     Route: 050
  2. TEMOZOLOMIDE [Suspect]
     Active Substance: TEMOZOLOMIDE
     Indication: Brain neoplasm malignant
     Dosage: 10MG DAILY ORAL DAYS 1-5 Q 28 DAYS?
     Route: 050
  3. ALFUZOSIN [Concomitant]
     Active Substance: ALFUZOSIN
  4. ATORVASTATIN [Concomitant]
     Active Substance: ATORVASTATIN
  5. COLACE [Concomitant]
     Active Substance: DOCUSATE SODIUM
  6. DEXAMETHASONE [Concomitant]
     Active Substance: DEXAMETHASONE
  7. FINASTERIDE [Concomitant]
     Active Substance: FINASTERIDE
  8. ACETAMINOPHEN\HYDROCODONE [Concomitant]
     Active Substance: ACETAMINOPHEN\HYDROCODONE
  9. KEPPRA [Concomitant]
     Active Substance: LEVETIRACETAM
  10. MAGNESIUM CITRATE [Concomitant]
     Active Substance: MAGNESIUM CITRATE
  11. ONDANSETRON [Concomitant]
     Active Substance: ONDANSETRON
  12. SULFAMETHOXAZOLE [Concomitant]
     Active Substance: SULFAMETHOXAZOLE

REACTIONS (1)
  - Hospice care [None]
